FAERS Safety Report 4752119-3 (Version None)
Quarter: 2005Q3

REPORT INFORMATION
  Report Type: 
  Country: None (occurrence: None)
  Receive Date: 20050825
  Receipt Date: 20050816
  Transmission Date: 20060218
  Serious: Yes (Other)
  Sender: FDA-Public Use
  Company Number: US-JNJFOC-20050203915

PATIENT
  Sex: Female
  Weight: 77.11 kg

DRUGS (22)
  1. REMICADE [Suspect]
     Route: 042
  2. REMICADE [Suspect]
     Indication: RHEUMATOID ARTHRITIS
     Route: 042
  3. METHOTREXATE [Concomitant]
     Indication: RHEUMATOID ARTHRITIS
  4. LIPITOR [Concomitant]
  5. PREVACID [Concomitant]
     Indication: DYSPHAGIA
  6. FOLIC ACID [Concomitant]
     Indication: RHEUMATOID ARTHRITIS
  7. CENTRUM [Concomitant]
  8. CENTRUM [Concomitant]
  9. CALCIUM GLUCONATE [Concomitant]
  10. MAGNESIUM [Concomitant]
  11. ZERTEC [Concomitant]
  12. ADVAIR DISKUS 100/50 [Concomitant]
  13. ADVAIR DISKUS 100/50 [Concomitant]
  14. FLONASE [Concomitant]
  15. FRICEDONE [Concomitant]
  16. DULCOLAX [Concomitant]
     Dosage: WHENEVER NECESSARY
     Route: 054
  17. HYDROCODONE/ACETOMINOPHEN [Concomitant]
     Route: 048
  18. HYDROCODONE/ACETOMINOPHEN [Concomitant]
     Indication: PAIN
     Dosage: 10 MG/325 MG 1-2 THREE TIMES DAY WHENEVER NE3CESSARY
     Route: 048
  19. CLARINEX [Concomitant]
     Route: 048
  20. CLINDAMYCIN [Concomitant]
     Dosage: 2 BY MOUTH ONE HOUR BEFORE THE PROCEDURE
     Route: 048
  21. FORTEO [Concomitant]
     Indication: OSTEOPOROSIS
  22. TRAZADONE [Concomitant]

REACTIONS (9)
  - BACK PAIN [None]
  - ENDODONTIC PROCEDURE [None]
  - IMMUNODEFICIENCY [None]
  - KNEE ARTHROPLASTY [None]
  - PHARYNGOLARYNGEAL PAIN [None]
  - SKIN LESION [None]
  - TOOTH EXTRACTION [None]
  - URINARY TRACT INFECTION [None]
  - WOUND INFECTION [None]
